FAERS Safety Report 10213788 (Version 1)
Quarter: 2014Q2

REPORT INFORMATION
  Report Type: Spontaneous
  Country: FR (occurrence: FR)
  Receive Date: 20140603
  Receipt Date: 20140603
  Transmission Date: 20141212
  Serious: Yes (Hospitalization)
  Sender: FDA-Public Use
  Company Number: FR-SA-2014SA066753

PATIENT
  Age: 49 Year
  Sex: Female

DRUGS (9)
  1. PLAVIX [Suspect]
     Indication: PRODUCT USED FOR UNKNOWN INDICATION
     Route: 048
     Dates: start: 20140418, end: 20140419
  2. PEGASYS [Suspect]
     Indication: PRODUCT USED FOR UNKNOWN INDICATION
     Route: 058
  3. COPEGUS [Suspect]
     Indication: PRODUCT USED FOR UNKNOWN INDICATION
     Dosage: DOSE: 18 UG
     Route: 058
  4. PANTOPRAZOLE [Concomitant]
     Route: 048
  5. ALDACTONE [Concomitant]
     Route: 048
  6. PROCORALAN [Concomitant]
  7. METHADONE [Concomitant]
  8. NEORECORMON [Concomitant]
  9. DIFFU K [Concomitant]
     Route: 048

REACTIONS (2)
  - Tonic convulsion [Recovered/Resolved]
  - Intentional overdose [Unknown]
